FAERS Safety Report 9199098 (Version 1)
Quarter: 2013Q1

REPORT INFORMATION
  Report Type: Spontaneous
  Country: US (occurrence: US)
  Receive Date: 20130329
  Receipt Date: 20130329
  Transmission Date: 20140127
  Serious: Yes (Other)
  Sender: FDA-Public Use
  Company Number: US-ASTELLAS-2013US003332

PATIENT
  Age: 57 Year
  Sex: Female

DRUGS (2)
  1. LEXISCAN [Suspect]
     Indication: CHEST PAIN
     Dosage: UNK
     Route: 042
     Dates: start: 20130320, end: 20130320
  2. RADIOISOTOPE [Suspect]
     Indication: CHEST PAIN
     Dosage: UNK
     Route: 065
     Dates: start: 20130320, end: 20130320

REACTIONS (3)
  - Unresponsive to stimuli [Recovering/Resolving]
  - Dyskinesia [Recovering/Resolving]
  - Feeling abnormal [Recovering/Resolving]
